FAERS Safety Report 8978794 (Version 2)
Quarter: 2013Q1

REPORT INFORMATION
  Report Type: Spontaneous
  Country: NZ (occurrence: NZ)
  Receive Date: 20121221
  Receipt Date: 20130104
  Transmission Date: 20140127
  Serious: Yes (Other)
  Sender: FDA-Public Use
  Company Number: PHHY2012NZ117787

PATIENT
  Sex: 0

DRUGS (4)
  1. METOPROLOL [Suspect]
     Dosage: UNK UKN, UNK
     Route: 048
  2. SPIRONOLACTONE [Concomitant]
     Dosage: UNK UKN, UNK
     Route: 048
  3. LOSARTAN [Concomitant]
     Route: 048
  4. PARACETAMOL [Concomitant]
     Route: 048

REACTIONS (2)
  - Transient ischaemic attack [Unknown]
  - Therapeutic response decreased [Unknown]
